FAERS Safety Report 21179098 (Version 1)
Quarter: 2022Q3

REPORT INFORMATION
  Report Type: Spontaneous
  Country: US (occurrence: US)
  Receive Date: 20220805
  Receipt Date: 20220805
  Transmission Date: 20221027
  Serious: No
  Sender: FDA-Public Use
  Company Number: US-JAZZ-2022-US-013725

PATIENT
  Age: 27 Year
  Sex: Female
  Weight: 65 kg

DRUGS (1)
  1. XYWAV [Suspect]
     Active Substance: CALCIUM OXYBATE\MAGNESIUM OXYBATE\POTASSIUM OXYBATE\SODIUM OXYBATE
     Indication: Hypersomnia
     Dosage: 3 GRAM, BID ( INTERVAL OF 1 HOUR)
     Route: 048
     Dates: start: 202202

REACTIONS (4)
  - Nocturia [Recovered/Resolved]
  - Sleep apnoea syndrome [Unknown]
  - Depression [Recovered/Resolved]
  - Anxiety [Recovered/Resolved]
